FAERS Safety Report 6730541-3 (Version None)
Quarter: 2010Q2

REPORT INFORMATION
  Report Type: 
  Country: None (occurrence: None)
  Receive Date: 20100514
  Receipt Date: 20100505
  Transmission Date: 20101027
  Serious: Yes (Hospitalization, Other)
  Sender: FDA-Public Use
  Company Number: 232645J08USA

PATIENT
  Age: 47 Year
  Sex: Female

DRUGS (4)
  1. REBIF [Suspect]
     Indication: MULTIPLE SCLEROSIS
     Dosage: 44 MCG, 3 IN 1 WK, SUBCUTANEOUS
     Route: 058
     Dates: start: 20040105
  2. TOPROL-XL [Concomitant]
  3. BACLOFEN [Concomitant]
  4. TRAMADOL HCL [Concomitant]

REACTIONS (7)
  - BLOOD PRESSURE INCREASED [None]
  - EXOSTOSIS [None]
  - HEART RATE DECREASED [None]
  - INJECTION SITE ERYTHEMA [None]
  - LIGAMENT RUPTURE [None]
  - MENOPAUSE [None]
  - SENSATION OF HEAVINESS [None]
